FAERS Safety Report 19892734 (Version 1)
Quarter: 2021Q3

REPORT INFORMATION
  Report Type: Spontaneous
  Country: US (occurrence: US)
  Receive Date: 20210928
  Receipt Date: 20210928
  Transmission Date: 20211014
  Serious: No
  Sender: FDA-Public Use
  Company Number: US-AMGEN-USASP2021146761

PATIENT
  Age: 70 Year
  Sex: Female

DRUGS (1)
  1. LUMAKRAS [Suspect]
     Active Substance: SOTORASIB
     Indication: NON-SMALL CELL LUNG CANCER
     Dosage: 960 MILLIGRAM, ONCE DAILY
     Route: 048
     Dates: start: 2021

REACTIONS (4)
  - Chest discomfort [Unknown]
  - Fatigue [Unknown]
  - Coordination abnormal [Unknown]
  - Muscular weakness [Unknown]

NARRATIVE: CASE EVENT DATE: 2021
